FAERS Safety Report 8248301-3 (Version None)
Quarter: 2012Q1

REPORT INFORMATION
  Report Type: 
  Country: None (occurrence: None)
  Receive Date: 20120330
  Receipt Date: 20120322
  Transmission Date: 20120608
  Serious: Yes (Hospitalization)
  Sender: FDA-Public Use
  Company Number: US-CELGENEUS-163-21880-12032800

PATIENT
  Sex: Female
  Weight: 70.31 kg

DRUGS (2)
  1. REVLIMID [Suspect]
     Indication: MONOCLONAL GAMMOPATHY
     Dosage: 10 MILLIGRAM
     Route: 048
     Dates: start: 20110811, end: 20120101
  2. REVLIMID [Suspect]
     Dosage: 10 MILLIGRAM
     Route: 048
     Dates: start: 20120101

REACTIONS (1)
  - RESPIRATORY DISORDER [None]
